FAERS Safety Report 17005527 (Version 1)
Quarter: 2019Q4

REPORT INFORMATION
  Report Type: Spontaneous
  Country: US (occurrence: US)
  Receive Date: 20191106
  Receipt Date: 20191106
  Transmission Date: 20200122
  Serious: Yes (Disabling)
  Sender: FDA-Public Use
  Company Number: None

PATIENT
  Age: 26 Year
  Sex: Female
  Weight: 54.43 kg

DRUGS (3)
  1. POTASSIUM [Concomitant]
     Active Substance: POTASSIUM
  2. MAGNESIUM [Concomitant]
     Active Substance: MAGNESIUM
  3. PARAGARD T 380A [Suspect]
     Active Substance: COPPER

REACTIONS (12)
  - Feeling abnormal [None]
  - Palpitations [None]
  - Anxiety [None]
  - Depression [None]
  - Complication associated with device [None]
  - Ovarian cyst [None]
  - Metrorrhagia [None]
  - Migraine [None]
  - Uterine pain [None]
  - Insomnia [None]
  - Alopecia [None]
  - Back pain [None]

NARRATIVE: CASE EVENT DATE: 20180925
